FAERS Safety Report 8099118-4 (Version None)
Quarter: 2012Q1

REPORT INFORMATION
  Report Type: 
  Country: None (occurrence: None)
  Receive Date: 20120129
  Receipt Date: 20111001
  Transmission Date: 20120608
  Serious: No
  Sender: FDA-Public Use
  Company Number: US-ABBOTT-11P-163-0860473-00

PATIENT
  Age: 46 Year
  Sex: Female

DRUGS (3)
  1. SINUTAB [Concomitant]
     Indication: HYPERSENSITIVITY
  2. HUMIRA [Suspect]
     Indication: PSORIASIS
     Dates: start: 20110301
  3. ZYRTEC [Concomitant]
     Indication: HYPERSENSITIVITY
     Dosage: OVER THE COUNTER, IN THE MORNING DAILY

REACTIONS (4)
  - HEADACHE [None]
  - OROPHARYNGEAL PAIN [None]
  - COUGH [None]
  - RESPIRATORY TRACT CONGESTION [None]
